FAERS Safety Report 11490259 (Version 1)
Quarter: 2015Q3

REPORT INFORMATION
  Report Type: Spontaneous
  Country: US (occurrence: None)
  Receive Date: 20150909
  Receipt Date: 20150909
  Transmission Date: 20151125
  Serious: Yes (Other)
  Sender: FDA-Public Use
  Company Number: ADR-2015-01572

PATIENT
  Age: 56 Year
  Sex: Female

DRUGS (2)
  1. BACLOFEN INTRATHECAL 0.5 MG/ML [Suspect]
     Active Substance: BACLOFEN
     Indication: PAIN
     Dosage: .21413 MG/DAY
  2. CLONIDINE 260 MCG/ML [Suspect]
     Active Substance: CLONIDINE
     Indication: PAIN
     Dosage: 111.35 MCG/DAY

REACTIONS (2)
  - Pain [None]
  - Tremor [None]
